FAERS Safety Report 8159600-8 (Version None)
Quarter: 2012Q1

REPORT INFORMATION
  Report Type: 
  Country: None (occurrence: None)
  Receive Date: 20120223
  Receipt Date: 20120214
  Transmission Date: 20120608
  Serious: Yes (Hospitalization)
  Sender: FDA-Public Use
  Company Number: AT-TEVA-323689USA

PATIENT
  Sex: Male
  Weight: 83 kg

DRUGS (2)
  1. TREANDA [Suspect]
     Indication: NON-HODGKIN'S LYMPHOMA
     Dosage: 170 MILLIGRAM;
     Route: 042
     Dates: start: 20111221, end: 20120214
  2. RITUXIMAB [Suspect]
     Indication: NON-HODGKIN'S LYMPHOMA
     Dosage: 730 MILLIGRAM;
     Route: 042
     Dates: start: 20111220, end: 20120214

REACTIONS (1)
  - RECTAL ABSCESS [None]
